FAERS Safety Report 5654032-6 (Version None)
Quarter: 2008Q1

REPORT INFORMATION
  Report Type: 
  Country: None (occurrence: None)
  Receive Date: 20080306
  Receipt Date: 20080226
  Transmission Date: 20080703
  Serious: Yes (Other)
  Sender: FDA-Public Use
  Company Number: AT-PFIZER INC-2008007482

PATIENT
  Sex: Female
  Weight: 80 kg

DRUGS (1)
  1. LYRICA [Suspect]
     Indication: GENERALISED ANXIETY DISORDER
     Route: 048
     Dates: start: 20070905, end: 20071220

REACTIONS (1)
  - BLOOD PRESSURE INCREASED [None]
